FAERS Safety Report 9718836 (Version 1)
Quarter: 2013Q4

REPORT INFORMATION
  Report Type: Spontaneous
  Country: FR (occurrence: FR)
  Receive Date: 20131127
  Receipt Date: 20131127
  Transmission Date: 20140711
  Serious: Yes (Life-Threatening)
  Sender: FDA-Public Use
  Company Number: FR-FRI-1000051757

PATIENT
  Age: 58 Year
  Sex: Male

DRUGS (3)
  1. MILNACIPRAN [Suspect]
     Indication: DEPRESSION
     Route: 048
     Dates: start: 201305, end: 20130525
  2. STILNOX [Concomitant]
  3. ALPRAZOLAM [Concomitant]

REACTIONS (3)
  - Anaemia [Recovering/Resolving]
  - Immune thrombocytopenic purpura [Recovering/Resolving]
  - Cholestasis [Unknown]
